FAERS Safety Report 7516351-8 (Version None)
Quarter: 2011Q2

REPORT INFORMATION
  Report Type: 
  Country: None (occurrence: None)
  Receive Date: 20110601
  Receipt Date: 20110525
  Transmission Date: 20111010
  Serious: Yes (Hospitalization, Other)
  Sender: FDA-Public Use
  Company Number: US-PFIZER INC-2011113598

PATIENT
  Sex: Male
  Weight: 77.098 kg

DRUGS (4)
  1. GEODON [Suspect]
     Indication: ANGER
     Dosage: 120 MG DAILY
     Route: 048
     Dates: start: 20040501
  2. GEODON [Suspect]
     Dosage: 120 MG DAILY
     Route: 048
     Dates: start: 20100601
  3. SOMA [Concomitant]
     Indication: SPINAL DEFORMITY
     Dosage: 350 MG, 3X/DAY
     Route: 048
  4. XANAX [Concomitant]
     Dosage: 2 MG, 2X/DAY
     Route: 048

REACTIONS (5)
  - INTRACRANIAL PRESSURE INCREASED [None]
  - GRAND MAL CONVULSION [None]
  - CEREBRAL HAEMORRHAGE [None]
  - PSYCHOTIC DISORDER [None]
  - ANKLE OPERATION [None]
